FAERS Safety Report 7635844-6 (Version None)
Quarter: 2011Q3

REPORT INFORMATION
  Report Type: 
  Country: None (occurrence: None)
  Receive Date: 20110726
  Receipt Date: 20110718
  Transmission Date: 20111222
  Serious: Yes (Hospitalization, Other)
  Sender: FDA-Public Use
  Company Number: US-ASTRAZENECA-2008UW26769

PATIENT
  Age: 48 Year
  Sex: Female
  Weight: 59 kg

DRUGS (15)
  1. ALBUTEROL SULFATE AUTOHALER [Concomitant]
     Dosage: PRN
     Dates: start: 20030725
  2. DEPAKOTE [Concomitant]
     Dates: start: 20071001, end: 20080416
  3. NABUMETONE [Concomitant]
     Dosage: 500 MG P.R.N VERY SPARINGLY
     Dates: start: 20071001
  4. EFFEXOR [Concomitant]
     Dosage: 150-300 MG DAILY
     Route: 048
     Dates: start: 20030101
  5. TRAZODONE HCL [Concomitant]
     Dates: start: 20030725
  6. REQUIP [Concomitant]
     Dates: start: 20071001
  7. SEROQUEL [Suspect]
     Route: 048
     Dates: start: 20050916, end: 20080416
  8. TRAZODONE HCL [Concomitant]
     Dosage: P.R.N ONLY
     Dates: start: 20071001
  9. TRICOR [Concomitant]
     Dates: start: 20071001
  10. CLONAZEPAM [Concomitant]
     Dates: start: 20071001
  11. ABILIFY [Concomitant]
     Dates: start: 20080416
  12. SEROQUEL [Suspect]
     Indication: BIPOLAR DISORDER
     Dosage: 25 MG TID TO 300 MG TID
     Route: 048
     Dates: start: 20031201, end: 20070101
  13. FLOVENT [Concomitant]
     Dosage: TWO PUFFS BID
     Dates: start: 20030725
  14. FELODIPINE TARTRATE [Concomitant]
     Dosage: P.R.N
     Dates: start: 20071001
  15. SPIRONOLACTONE [Concomitant]
     Dates: start: 20071001

REACTIONS (7)
  - POOR QUALITY SLEEP [None]
  - BACK INJURY [None]
  - BACK PAIN [None]
  - STRESS [None]
  - TYPE 2 DIABETES MELLITUS [None]
  - BLOOD TRIGLYCERIDES INCREASED [None]
  - MENTAL DISORDER [None]
